FAERS Safety Report 7300524-3 (Version None)
Quarter: 2011Q1

REPORT INFORMATION
  Report Type: 
  Country: None (occurrence: None)
  Receive Date: 20110217
  Receipt Date: 20110211
  Transmission Date: 20110831
  Serious: Yes (Other)
  Sender: FDA-Public Use
  Company Number: US-AMGEN-USASP2011008475

PATIENT
  Age: 51 Year
  Sex: Male

DRUGS (1)
  1. ENBREL [Suspect]
     Dosage: 50 MG, QWK
     Dates: start: 20030201

REACTIONS (5)
  - HYPOAESTHESIA [None]
  - PARAESTHESIA [None]
  - VISION BLURRED [None]
  - CONJUNCTIVAL HAEMORRHAGE [None]
  - MUSCULAR WEAKNESS [None]
